FAERS Safety Report 11836646 (Version 4)
Quarter: 2020Q4

REPORT INFORMATION
  Report Type: Spontaneous
  Country: US (occurrence: US)
  Receive Date: 20151215
  Receipt Date: 20201028
  Transmission Date: 20210113
  Serious: Yes (Hospitalization)
  Sender: FDA-Public Use
  Company Number: US-CELGENEUS-USA-2015122816

PATIENT
  Age: 79 Year
  Sex: Male
  Weight: 92 kg

DRUGS (9)
  1. M402 (NECUPARANIB) [Suspect]
     Active Substance: NECUPARANIB
     Indication: PANCREATIC CARCINOMA METASTATIC
     Dosage: 5 MILLIGRAM/KILOGRAM
     Route: 041
     Dates: start: 20151029
  2. GEMCITABINE. [Suspect]
     Active Substance: GEMCITABINE
     Dosage: 800 MILLIGRAM/SQ. METER
     Route: 041
     Dates: start: 20151127, end: 20151210
  3. GEMCITABINE. [Suspect]
     Active Substance: GEMCITABINE
     Dosage: 600 MILLIGRAM/SQ. METER
     Route: 041
     Dates: start: 20151231
  4. M402 (NECUPARANIB) [Suspect]
     Active Substance: NECUPARANIB
     Dosage: 5 MILLIGRAM/KILOGRAM
     Route: 041
     Dates: start: 20151127, end: 20151203
  5. ABRAXANE [Suspect]
     Active Substance: PACLITAXEL
     Indication: PANCREATIC CARCINOMA
     Dosage: 125 MILLIGRAM/SQ. METER
     Route: 041
     Dates: start: 20151029
  6. ABRAXANE [Suspect]
     Active Substance: PACLITAXEL
     Dosage: 75 MILLIGRAM/SQ. METER
     Route: 041
     Dates: start: 20151231
  7. GEMCITABINE. [Suspect]
     Active Substance: GEMCITABINE
     Indication: PANCREATIC CARCINOMA
     Dosage: 1000 MILLIGRAM/SQ. METER
     Route: 041
     Dates: start: 20151029
  8. ABRAXANE [Suspect]
     Active Substance: PACLITAXEL
     Dosage: 100 MILLIGRAM/SQ. METER
     Route: 041
     Dates: start: 20151127, end: 20151210
  9. M402 (NECUPARANIB) [Suspect]
     Active Substance: NECUPARANIB
     Route: 041
     Dates: start: 20151210

REACTIONS (2)
  - Nausea [Recovered/Resolved]
  - Vomiting [Recovered/Resolved]

NARRATIVE: CASE EVENT DATE: 20151204
